FAERS Safety Report 5822337-1 (Version None)
Quarter: 2008Q3

REPORT INFORMATION
  Report Type: 
  Country: None (occurrence: None)
  Receive Date: 20080723
  Receipt Date: 20080723
  Transmission Date: 20090109
  Serious: No
  Sender: FDA-Public Use
  Company Number: None

PATIENT
  Sex: Male
  Weight: 113.3993 kg

DRUGS (1)
  1. DEFINITY [Suspect]
     Indication: ECHOCARDIOGRAM
     Dosage: 3 CC -DILUTED- ONCE IV BOLUS
     Route: 040
     Dates: start: 20080721, end: 20080721

REACTIONS (2)
  - BACK PAIN [None]
  - MUSCLE SPASMS [None]
